FAERS Safety Report 5408361-1 (Version None)
Quarter: 2007Q3

REPORT INFORMATION
  Report Type: 
  Country: None (occurrence: None)
  Receive Date: 20070803
  Receipt Date: 20070706
  Transmission Date: 20080115
  Serious: Yes (Other)
  Sender: FDA-Public Use
  Company Number: 2007RR-08401

PATIENT
  Age: 56 Year
  Sex: Female

DRUGS (2)
  1. ROXITHROMYCIN                     (ROXITHROMYCIN) [Suspect]
     Indication: SUBCUTANEOUS NODULE
     Dosage: 300 MG, ORAL
     Route: 048
  2. CLARITHROMYCIN [Suspect]
     Indication: SUBCUTANEOUS NODULE
     Dosage: 400 MG, ORAL
     Route: 048

REACTIONS (1)
  - DRUG INEFFECTIVE [None]
